FAERS Safety Report 19004447 (Version 1)
Quarter: 2021Q1

REPORT INFORMATION
  Report Type: Spontaneous
  Country: US (occurrence: US)
  Receive Date: 20210313
  Receipt Date: 20210313
  Transmission Date: 20210420
  Serious: Yes (Other)
  Sender: FDA-Public Use
  Company Number: US-GLAND PHARMA LIMITED-2021US002014

PATIENT
  Age: 81 Year
  Sex: Male

DRUGS (3)
  1. GEMCITABINE. [Suspect]
     Active Substance: GEMCITABINE
     Dosage: 800 MG/M2
     Route: 065
  2. GEMCITABINE. [Suspect]
     Active Substance: GEMCITABINE
     Indication: ACINAR CELL CARCINOMA OF PANCREAS
     Dosage: 1000 MG/M2, CYCLIC
     Route: 065
  3. PACLITAXEL ALBUMIN [Suspect]
     Active Substance: PACLITAXEL
     Indication: ACINAR CELL CARCINOMA OF PANCREAS
     Dosage: UNK UNK, CYCLIC
     Route: 065

REACTIONS (3)
  - Acinar cell carcinoma of pancreas [Recovering/Resolving]
  - Disease progression [Recovering/Resolving]
  - Drug intolerance [Recovered/Resolved]
